FAERS Safety Report 16747543 (Version 1)
Quarter: 2019Q3

REPORT INFORMATION
  Report Type: Spontaneous
  Country: FR (occurrence: FR)
  Receive Date: 20190827
  Receipt Date: 20190827
  Transmission Date: 20191005
  Serious: Yes (Death)
  Sender: FDA-Public Use
  Company Number: FR-TEVA-2019-FR-1097063

PATIENT
  Age: 54 Year
  Sex: Male

DRUGS (1)
  1. TRAMADOL BASE [Suspect]
     Active Substance: TRAMADOL
     Route: 065

REACTIONS (1)
  - Drug abuse [Fatal]
